FAERS Safety Report 14185709 (Version 1)
Quarter: 2017Q4

REPORT INFORMATION
  Report Type: Spontaneous
  Country: CN (occurrence: CN)
  Receive Date: 20171114
  Receipt Date: 20171114
  Transmission Date: 20180321
  Serious: Yes (Hospitalization, Other)
  Sender: FDA-Public Use
  Company Number: CN-BAYER-2017-212617

PATIENT
  Age: 52 Year
  Sex: Male

DRUGS (1)
  1. NEXAVAR [Suspect]
     Active Substance: SORAFENIB
     Indication: HEPATOCELLULAR CARCINOMA
     Dosage: 400 MG, BID
     Route: 048
     Dates: start: 201508

REACTIONS (6)
  - Eastern Cooperative Oncology Group performance status worsened [None]
  - Transcatheter arterial chemoembolisation [None]
  - Transcatheter arterial chemoembolisation [None]
  - Upper gastrointestinal haemorrhage [Recovered/Resolved]
  - Angiogram [None]
  - Angiogram [None]

NARRATIVE: CASE EVENT DATE: 20150918
